FAERS Safety Report 9782922 (Version 3)
Quarter: 2013Q4

REPORT INFORMATION
  Report Type: Spontaneous
  Country: PR (occurrence: PR)
  Receive Date: 20131226
  Receipt Date: 20131231
  Transmission Date: 20140711
  Serious: Yes (Other)
  Sender: FDA-Public Use
  Company Number: PR-009507513-1311USA008015

PATIENT
  Age: 47 Year
  Sex: Male

DRUGS (2)
  1. PEGINTERFERON ALFA-2B [Suspect]
     Indication: HEPATITIS C
     Dosage: REDIPEN
     Dates: start: 20131018, end: 20131111
  2. RIBAVIRIN [Suspect]
     Indication: HEPATITIS C
     Dosage: UNK
     Route: 048
     Dates: start: 20131018, end: 20131111

REACTIONS (3)
  - Convulsion [Unknown]
  - Panic attack [Unknown]
  - Chills [Unknown]
